FAERS Safety Report 6602721-9 (Version None)
Quarter: 2010Q1

REPORT INFORMATION
  Report Type: 
  Country: None (occurrence: None)
  Receive Date: 20100218
  Receipt Date: 20100204
  Transmission Date: 20100710
  Serious: Yes (Hospitalization)
  Sender: FDA-Public Use
  Company Number: 2010AL000935

PATIENT
  Age: 67 Year
  Sex: Male

DRUGS (5)
  1. NAPROXEN [Suspect]
     Indication: RHEUMATOID ARTHRITIS
     Dosage: 250 MG;BID;PO
     Route: 048
     Dates: start: 20100111, end: 20100129
  2. LANSOPRAZOLE [Concomitant]
  3. PARACETAMOL [Concomitant]
  4. TRAMADOL HCL [Concomitant]
  5. PROCHLORPERAZINE [Concomitant]

REACTIONS (1)
  - PLATELET COUNT DECREASED [None]
